FAERS Safety Report 9406968 (Version 3)
Quarter: 2013Q3

REPORT INFORMATION
  Report Type: Spontaneous
  Country: US (occurrence: US)
  Receive Date: 20130718
  Receipt Date: 20130808
  Transmission Date: 20140515
  Serious: Yes (Hospitalization, Other)
  Sender: FDA-Public Use
  Company Number: US-PFIZER INC-2013207250

PATIENT
  Age: 59 Year
  Sex: Male
  Weight: 78.46 kg

DRUGS (1)
  1. BOSULIF [Suspect]
     Indication: CHRONIC MYELOID LEUKAEMIA
     Dosage: 500 MG, 1X/DAY
     Route: 048
     Dates: start: 20120924

REACTIONS (19)
  - Pancreatitis [Unknown]
  - Pneumonia [Recovering/Resolving]
  - Influenza [Unknown]
  - Fatigue [Unknown]
  - Nodule [Unknown]
  - Hypoaesthesia [Unknown]
  - Depression [Unknown]
  - Paraesthesia [Unknown]
  - Dizziness [Unknown]
  - Headache [Unknown]
  - Amnesia [Unknown]
  - Balance disorder [Unknown]
  - Muscular weakness [Unknown]
  - Rash macular [Unknown]
  - Pruritus [Unknown]
  - Dyspnoea exertional [Unknown]
  - Weight decreased [Unknown]
  - Dysphagia [Unknown]
  - Hearing impaired [Unknown]
